FAERS Safety Report 14990733 (Version 1)
Quarter: 2018Q2

REPORT INFORMATION
  Report Type: Spontaneous
  Country: IT (occurrence: IT)
  Receive Date: 20180608
  Receipt Date: 20180608
  Transmission Date: 20180711
  Serious: Yes (Other)
  Sender: FDA-Public Use
  Company Number: IT-PFIZER INC-2018232596

PATIENT
  Age: 45 Year
  Sex: Male
  Weight: 80 kg

DRUGS (4)
  1. TAVOR (LORAZEPAM) [Suspect]
     Active Substance: LORAZEPAM
     Dosage: UNK
     Route: 048
  2. RISPERDAL [Suspect]
     Active Substance: RISPERIDONE
     Dosage: UNK
     Route: 048
  3. RISPERDAL [Suspect]
     Active Substance: RISPERIDONE
     Dosage: 48 MG, SINGLE
     Route: 048
     Dates: start: 20180430, end: 20180430
  4. TAVOR (LORAZEPAM) [Suspect]
     Active Substance: LORAZEPAM
     Dosage: 50 MG, SINGLE
     Route: 048
     Dates: start: 20180430, end: 20180430

REACTIONS (2)
  - Intentional self-injury [Unknown]
  - Intentional overdose [Unknown]

NARRATIVE: CASE EVENT DATE: 20180430
